FAERS Safety Report 6349367-8 (Version None)
Quarter: 2009Q3

REPORT INFORMATION
  Report Type: 
  Country: None (occurrence: None)
  Receive Date: 20090911
  Receipt Date: 20090909
  Transmission Date: 20100115
  Serious: Yes (Death)
  Sender: FDA-Public Use
  Company Number: US-SANOFI-SYNTHELABO-A03200904040

PATIENT
  Age: 65 Year
  Sex: Male

DRUGS (3)
  1. MULTAQ [Suspect]
     Indication: ATRIAL FIBRILLATION
     Dosage: UNK
     Route: 048
     Dates: start: 20090101
  2. LIPID LOWERING AGENTS NOS [Concomitant]
     Dosage: UNK
     Route: 065
  3. PLAVIX [Concomitant]
     Dosage: UNK
     Route: 065

REACTIONS (1)
  - DEATH [None]
